FAERS Safety Report 10542913 (Version 1)
Quarter: 2014Q4

REPORT INFORMATION
  Report Type: Spontaneous
  Country: FR (occurrence: FR)
  Receive Date: 20141027
  Receipt Date: 20141027
  Transmission Date: 20150529
  Serious: Yes (Hospitalization)
  Sender: FDA-Public Use
  Company Number: FR-JNJFOC-20141009049

PATIENT
  Age: 82 Year
  Sex: Female

DRUGS (12)
  1. DUROGESIC [Suspect]
     Active Substance: FENTANYL
     Indication: PRODUCT USED FOR UNKNOWN INDICATION
     Route: 062
     Dates: start: 201404, end: 20140730
  2. GLYCERYL TRINITRATE [Concomitant]
     Active Substance: NITROGLYCERIN
     Route: 062
  3. INEXIUM [Concomitant]
     Active Substance: ESOMEPRAZOLE
     Route: 048
  4. HEMIGOXINE NATIVELLE [Concomitant]
     Active Substance: DIGOXIN
     Route: 048
  5. DOLIPRANE [Concomitant]
     Active Substance: ACETAMINOPHEN
     Route: 065
  6. PREVISCAN (FLUINDIONE) [Concomitant]
     Active Substance: FLUINDIONE
     Route: 048
  7. CORTANCYL [Concomitant]
     Active Substance: PREDNISONE
     Route: 048
  8. LASILIX [Concomitant]
     Active Substance: FUROSEMIDE
     Route: 048
  9. RAMIPRIL. [Concomitant]
     Active Substance: RAMIPRIL
     Route: 065
  10. DIFFU K [Concomitant]
     Active Substance: POTASSIUM CHLORIDE
     Route: 048
  11. BISOCE [Concomitant]
     Active Substance: BISOPROLOL
     Route: 048
  12. CALCIDOSE [Concomitant]
     Active Substance: CALCIUM CARBONATE
     Route: 065

REACTIONS (2)
  - Rib fracture [Recovered/Resolved]
  - Fall [Recovered/Resolved]

NARRATIVE: CASE EVENT DATE: 20140726
